FAERS Safety Report 14751906 (Version 1)
Quarter: 2018Q2

REPORT INFORMATION
  Report Type: Spontaneous
  Country: US (occurrence: US)
  Receive Date: 20180406
  Receipt Date: 20180406
  Transmission Date: 20180711
  Serious: No
  Sender: FDA-Public Use
  Company Number: None

PATIENT
  Age: 62 Year
  Sex: Male
  Weight: 109.1 kg

DRUGS (2)
  1. LEUPROLIDE ACETATE. [Suspect]
     Active Substance: LEUPROLIDE ACETATE
     Dates: end: 20180319
  2. CASODEX [Suspect]
     Active Substance: BICALUTAMIDE
     Dates: end: 20170202

REACTIONS (1)
  - Hot flush [None]

NARRATIVE: CASE EVENT DATE: 20180319
